FAERS Safety Report 4697183-5 (Version None)
Quarter: 2005Q2

REPORT INFORMATION
  Report Type: 
  Country: None (occurrence: None)
  Receive Date: 20050622
  Receipt Date: 20050608
  Transmission Date: 20051028
  Serious: Yes (Hospitalization)
  Sender: FDA-Public Use
  Company Number: AU-JNJFOC-20050603789

PATIENT
  Age: 21 Year
  Sex: Male

DRUGS (11)
  1. TRAMADOL HCL [Suspect]
     Indication: PAIN
     Route: 049
  2. AMITRIPTYLINE HYDROCHLORIDE [Interacting]
     Indication: PAIN
     Route: 049
  3. OXYCODONE HCL [Interacting]
     Indication: PAIN
     Route: 049
  4. MAGNESIUM ASPARTATE [Concomitant]
     Route: 065
  5. PANCRELIPASE [Concomitant]
     Route: 065
  6. CENTRUM [Concomitant]
     Route: 065
  7. CENTRUM [Concomitant]
     Route: 065
  8. AUGMENTIN '125' [Concomitant]
     Route: 065
  9. AUGMENTIN '125' [Concomitant]
     Indication: INFECTION PARASITIC
     Route: 065
  10. AMANTADINE HCL [Concomitant]
     Indication: SENSORY DISTURBANCE
     Route: 065
  11. ALBUTEROL SULFATE HFA [Concomitant]
     Route: 065

REACTIONS (4)
  - CONFUSIONAL STATE [None]
  - DISORIENTATION [None]
  - DRUG INTERACTION [None]
  - HALLUCINATION, VISUAL [None]
